FAERS Safety Report 7759808-7 (Version None)
Quarter: 2011Q3

REPORT INFORMATION
  Report Type: 
  Country: None (occurrence: None)
  Receive Date: 20110919
  Receipt Date: 20110913
  Transmission Date: 20111222
  Serious: Yes (Life-Threatening, Hospitalization, Other)
  Sender: FDA-Public Use
  Company Number: US-ASTRAZENECA-2011SE36459

PATIENT
  Age: 36 Year
  Sex: Female
  Weight: 68 kg

DRUGS (6)
  1. SLEEP AIDS [Suspect]
     Route: 065
  2. SEROQUEL [Suspect]
     Route: 048
     Dates: start: 20090101
  3. TYLENOL-500 [Suspect]
     Route: 065
  4. XANAX [Concomitant]
  5. SEROQUEL [Suspect]
     Indication: BIPOLAR DISORDER
     Route: 048
     Dates: start: 20010101, end: 20090101
  6. LITHIUM CARBONATE [Concomitant]

REACTIONS (18)
  - DISINHIBITION [None]
  - THERAPY CESSATION [None]
  - HALLUCINATION [None]
  - ASTHENIA [None]
  - DELUSION [None]
  - SUBSTANCE ABUSE [None]
  - DRUG DOSE OMISSION [None]
  - WEIGHT INCREASED [None]
  - SUICIDE ATTEMPT [None]
  - SUICIDAL IDEATION [None]
  - VOMITING [None]
  - GALLBLADDER DISORDER [None]
  - NERVOUS SYSTEM DISORDER [None]
  - BLOOD IRON DECREASED [None]
  - GRAND MAL CONVULSION [None]
  - VERBAL ABUSE [None]
  - DEPRESSION [None]
  - INCREASED APPETITE [None]
